FAERS Safety Report 18092299 (Version 4)
Quarter: 2020Q4

REPORT INFORMATION
  Report Type: Report from Study
  Country: CA (occurrence: CA)
  Receive Date: 20200730
  Receipt Date: 20201216
  Transmission Date: 20210113
  Serious: Yes (Hospitalization, Other)
  Sender: FDA-Public Use
  Company Number: PHHY2011CA74452

PATIENT
  Age: 70 Year
  Sex: Male

DRUGS (3)
  1. SANDOSTATIN LAR DEPOT [Suspect]
     Active Substance: OCTREOTIDE ACETATE
  2. SANDOSTATIN LAR DEPOT [Suspect]
     Active Substance: OCTREOTIDE ACETATE
     Dosage: UNK
     Route: 065
     Dates: start: 20191112
  3. SANDOSTATIN LAR DEPOT [Suspect]
     Active Substance: OCTREOTIDE ACETATE
     Indication: ACROMEGALY
     Dosage: 10 MG, QMO, (EVERY 4 WEEKS)
     Route: 030
     Dates: start: 20110812

REACTIONS (23)
  - Faeces hard [Unknown]
  - Nervousness [Unknown]
  - Heart rate decreased [Unknown]
  - Diarrhoea [Unknown]
  - Blood pressure increased [Unknown]
  - Hypertension [Unknown]
  - Nasopharyngitis [Unknown]
  - Haemorrhoids [Unknown]
  - Malaise [Unknown]
  - Abdominal pain [Unknown]
  - Cholelithiasis [Unknown]
  - Anal fissure [Unknown]
  - Decreased appetite [Unknown]
  - Increased appetite [Unknown]
  - Influenza [Unknown]
  - Abnormal faeces [Unknown]
  - Flatulence [Unknown]
  - Nephrolithiasis [Unknown]
  - Electrocardiogram ambulatory abnormal [Unknown]
  - Osteoarthritis [Unknown]
  - Injection site erythema [Unknown]
  - Road traffic accident [Unknown]
  - Limb deformity [Unknown]

NARRATIVE: CASE EVENT DATE: 2015
